FAERS Safety Report 7307945-3 (Version None)
Quarter: 2011Q1

REPORT INFORMATION
  Report Type: 
  Country: None (occurrence: None)
  Receive Date: 20110210
  Receipt Date: 20110126
  Transmission Date: 20110831
  Serious: Yes (Life-Threatening, Hospitalization)
  Sender: FDA-Public Use
  Company Number: 009557

PATIENT
  Sex: Male
  Weight: 81.6475 kg

DRUGS (13)
  1. IRON [Concomitant]
  2. BENICAR [Concomitant]
  3. FOLIC ACID [Concomitant]
  4. ENTOCORT EC [Concomitant]
  5. CENTRUM /00554501/ [Concomitant]
  6. CYANOCOBALAMIN [Concomitant]
  7. POTASSIUM [Concomitant]
  8. SULFASALAZINE [Concomitant]
  9. PREDNISONE [Concomitant]
  10. TYLENOL (CAPLET) [Concomitant]
  11. CALCIUM [Concomitant]
  12. METHOTREXATE [Concomitant]
  13. CIMZIA [Suspect]
     Indication: CROHN'S DISEASE
     Dosage: (400 MG 1X/2 WEEKS SUBCUTANEOUS) ; (400 MG 1X/MONTH SUBCUTANEOUS)
     Route: 058
     Dates: start: 20100114

REACTIONS (26)
  - PULMONARY INFARCTION [None]
  - PULMONARY OEDEMA [None]
  - INTERNATIONAL NORMALISED RATIO ABNORMAL [None]
  - PULMONARY EMBOLISM [None]
  - AORTIC VALVE INCOMPETENCE [None]
  - RENAL FAILURE ACUTE [None]
  - HYPOXIA [None]
  - OCCULT BLOOD POSITIVE [None]
  - HYPOKALAEMIA [None]
  - HAEMORRHAGIC ANAEMIA [None]
  - HYPERGLYCAEMIA [None]
  - BRAIN NATRIURETIC PEPTIDE INCREASED [None]
  - RENAL ATROPHY [None]
  - IMMUNOSUPPRESSION [None]
  - INFLAMMATION [None]
  - DEEP VEIN THROMBOSIS [None]
  - PLATELET COUNT DECREASED [None]
  - RENAL TUBULAR NECROSIS [None]
  - HYPOCALCAEMIA [None]
  - LEUKOCYTOSIS [None]
  - PNEUMONIA [None]
  - RENAL CYST [None]
  - HYPERNATRAEMIA [None]
  - INFECTION [None]
  - ACUTE RESPIRATORY FAILURE [None]
  - HYPERTENSION [None]
